FAERS Safety Report 21082450 (Version 1)
Quarter: 2022Q3

REPORT INFORMATION
  Report Type: Spontaneous
  Country: US (occurrence: US)
  Receive Date: 20220714
  Receipt Date: 20220714
  Transmission Date: 20221027
  Serious: No
  Sender: FDA-Public Use
  Company Number: US-PFIZER INC-202200949765

PATIENT
  Age: 33 Year
  Sex: Female

DRUGS (4)
  1. PAXLOVID [Suspect]
     Active Substance: NIRMATRELVIR\RITONAVIR
     Indication: COVID-19 treatment
     Dosage: UNK
     Dates: start: 20220630, end: 20220707
  2. ZOLOFT [Concomitant]
     Active Substance: SERTRALINE HYDROCHLORIDE
     Dosage: UNK
     Dates: start: 202003
  3. ZYRTEC [Concomitant]
     Active Substance: CETIRIZINE HYDROCHLORIDE
     Dosage: UNK
     Dates: start: 202111
  4. MUPIROCIN [Concomitant]
     Active Substance: MUPIROCIN
     Dosage: SALINE RINSE
     Dates: start: 202204

REACTIONS (3)
  - Dysgeusia [Unknown]
  - Parosmia [Unknown]
  - Product use issue [Unknown]

NARRATIVE: CASE EVENT DATE: 20220630
